FAERS Safety Report 6443028-2 (Version None)
Quarter: 2009Q4

REPORT INFORMATION
  Report Type: 
  Country: None (occurrence: None)
  Receive Date: 20091117
  Receipt Date: 20091111
  Transmission Date: 20100525
  Serious: Yes (Death, Hospitalization, Other)
  Sender: FDA-Public Use
  Company Number: PHHY2009JP39720

PATIENT
  Sex: Male
  Weight: 52 kg

DRUGS (12)
  1. SANDIMMUNE [Suspect]
     Indication: COLITIS ULCERATIVE
     Dosage: 100 MG DAILY
     Route: 042
     Dates: start: 20080715
  2. LOXONIN [Suspect]
     Indication: BACK PAIN
     Dosage: 180 MG DAILY
     Route: 048
     Dates: start: 20080703
  3. BAKTAR [Suspect]
     Indication: OPPORTUNISTIC INFECTION PROPHYLAXIS
     Dosage: UNK
     Route: 048
     Dates: start: 20080715
  4. PREDONINE [Concomitant]
     Indication: COLITIS ULCERATIVE
     Dosage: 20 MG/DAY
     Route: 048
     Dates: start: 20060701
  5. PREDONINE [Concomitant]
     Dosage: 2.5 MG/DAY
     Route: 048
     Dates: start: 20080301
  6. LEUKERIN [Concomitant]
     Indication: CYTOMEGALOVIRUS INFECTION
     Dosage: UNK
     Dates: start: 20070919
  7. DENOSINE ^TANABE^ [Concomitant]
     Indication: CYTOMEGALOVIRUS ENTEROCOLITIS
  8. MODACIN [Concomitant]
     Indication: CYTOMEGALOVIRUS ENTEROCOLITIS
  9. BIFIDOBACTERIUM BIFIDUM [Concomitant]
     Indication: COLITIS ULCERATIVE
     Dosage: 3.0G
     Route: 048
     Dates: start: 20080702
  10. ROHYPNOL [Concomitant]
     Indication: INSOMNIA
     Dosage: 2MG
     Dates: start: 20080702
  11. SELBEX [Concomitant]
     Indication: GASTRITIS PROPHYLAXIS
     Dosage: 150 MG
     Dates: start: 20080703
  12. VASOLAN [Concomitant]
     Indication: ATRIAL FIBRILLATION
     Dosage: 240 MG
     Route: 048

REACTIONS (16)
  - ASCITES [None]
  - BLOOD AMYLASE INCREASED [None]
  - BLOOD BETA-D-GLUCAN INCREASED [None]
  - BLOOD LACTATE DEHYDROGENASE INCREASED [None]
  - C-REACTIVE PROTEIN INCREASED [None]
  - CONDITION AGGRAVATED [None]
  - DRUG LEVEL INCREASED [None]
  - DYSPNOEA [None]
  - FACE OEDEMA [None]
  - GENERAL PHYSICAL HEALTH DETERIORATION [None]
  - HAEMODIALYSIS [None]
  - LIPASE INCREASED [None]
  - PLATELET COUNT DECREASED [None]
  - PLEURAL EFFUSION [None]
  - RENAL FAILURE ACUTE [None]
  - RESPIRATORY DISTRESS [None]
